FAERS Safety Report 5845728-1 (Version None)
Quarter: 2008Q3

REPORT INFORMATION
  Report Type: 
  Country: None (occurrence: None)
  Receive Date: 20080814
  Receipt Date: 20080808
  Transmission Date: 20090109
  Serious: Yes (Hospitalization)
  Sender: FDA-Public Use
  Company Number: PHHY2008GB12059

PATIENT
  Sex: Female

DRUGS (18)
  1. MIACALCIN [Suspect]
     Indication: SPINAL FRACTURE
     Dosage: 100 IU SC
     Dates: start: 20080607
  2. PREDNISOLONE [Concomitant]
     Dosage: 5 MG
     Route: 048
  3. OMEPRAZOLE [Concomitant]
     Dosage: 20 MG
     Route: 048
  4. TRAMADOL HCL [Concomitant]
     Dosage: 400 MG
     Route: 048
  5. PROCHLORPERAZINE [Concomitant]
     Dosage: 5 MG
     Route: 048
  6. VERAPAMIL [Concomitant]
     Dosage: 240 MG
     Route: 048
  7. BISOPROLOL FUMARATE [Concomitant]
     Dosage: 1.25 MG, QD
     Route: 048
  8. ADCAL-D3 [Concomitant]
     Dosage: UNK
     Route: 048
  9. QUININE SULPHATE [Concomitant]
     Dosage: 300 MG, QD
     Route: 048
  10. AMITRIPTYLINE HCL [Concomitant]
     Dosage: 10 MG
     Route: 048
  11. NITROGLYCERIN [Concomitant]
     Dosage: 5 MG, QD
  12. FUROSEMIDE [Concomitant]
     Dosage: 40 MG
     Route: 048
  13. ASPIRIN [Concomitant]
     Dosage: 75 MG, QD
     Route: 048
  14. SERETIDE [Concomitant]
     Dosage: UNK
  15. FERROUS SULFATE TAB [Concomitant]
     Dosage: 200 MG, TID
  16. HYPROMELLOSE [Concomitant]
     Dosage: UNK
  17. PARACETAMOL [Concomitant]
     Dosage: UNK
  18. SODIUM CHLORIDE [Concomitant]
     Dosage: UNK

REACTIONS (1)
  - BLOOD CREATININE INCREASED [None]
